FAERS Safety Report 24267067 (Version 1)
Quarter: 2024Q3

REPORT INFORMATION
  Report Type: Spontaneous
  Country: CH (occurrence: CH)
  Receive Date: 20240830
  Receipt Date: 20240830
  Transmission Date: 20241017
  Serious: Yes (Hospitalization)
  Sender: ABBVIE
  Company Number: CH-ABBVIE-5885831

PATIENT
  Age: 54 Year
  Sex: Female

DRUGS (5)
  1. RINVOQ [Suspect]
     Active Substance: UPADACITINIB
     Indication: Psoriasis
     Route: 048
     Dates: start: 20220810, end: 20230414
  2. AZATHIOPRINE [Suspect]
     Active Substance: AZATHIOPRINE
     Indication: Product used for unknown indication
     Route: 065
     Dates: start: 20230510, end: 20230623
  3. COSENTYX [Suspect]
     Active Substance: SECUKINUMAB
     Indication: Product used for unknown indication
     Route: 065
     Dates: start: 20240223, end: 20240408
  4. LOSARTAN [Concomitant]
     Active Substance: LOSARTAN\LOSARTAN POTASSIUM
     Indication: Hypertension
     Dosage: FREQUENCY TEXT: IF NEEDED
  5. Pasta cerata schleich [Concomitant]
     Indication: Product used for unknown indication
     Dates: start: 20210531

REACTIONS (21)
  - Palmoplantar pustulosis [Recovered/Resolved]
  - Staphylococcal infection [Unknown]
  - Decreased appetite [Unknown]
  - Off label use [Not Recovered/Not Resolved]
  - Drug ineffective [Unknown]
  - Skin fissures [Unknown]
  - Transaminases increased [Unknown]
  - Asthma [Unknown]
  - Psoriasis [Unknown]
  - Drug ineffective [Unknown]
  - Seborrhoea [Unknown]
  - Conjunctivitis allergic [Unknown]
  - Erythema nodosum [Unknown]
  - Nausea [Unknown]
  - Drug ineffective [Unknown]
  - Psoriasis [Recovered/Resolved]
  - Erysipelas [Unknown]
  - Dermatitis atopic [Unknown]
  - Disease susceptibility [Unknown]
  - Liver disorder [Unknown]
  - Palmoplantar pustulosis [Unknown]

NARRATIVE: CASE EVENT DATE: 20220810
